FAERS Safety Report 4690810-8 (Version None)
Quarter: 2005Q2

REPORT INFORMATION
  Report Type: 
  Country: None (occurrence: None)
  Receive Date: 20050615
  Receipt Date: 20050314
  Transmission Date: 20051028
  Serious: Yes (Hospitalization)
  Sender: FDA-Public Use
  Company Number: DE-MERCK-0503DEU00124

PATIENT
  Age: 62 Year
  Sex: Female
  Weight: 93 kg

DRUGS (10)
  1. VIOXX [Suspect]
     Indication: INTERVERTEBRAL DISC PROTRUSION
     Route: 048
     Dates: start: 20040504, end: 20040601
  2. LEVOTHYROXINE SODIUM [Concomitant]
     Route: 065
  3. FLUPIRTINE MALEATE [Concomitant]
     Route: 065
  4. BISOPROLOL [Concomitant]
     Route: 065
     Dates: end: 20040101
  5. BISOPROLOL [Concomitant]
     Route: 065
     Dates: start: 20040101
  6. HEPARIN SODIUM [Concomitant]
     Route: 065
     Dates: end: 20040101
  7. RANITIDINE [Concomitant]
     Route: 065
  8. TELMISARTAN [Concomitant]
     Route: 065
     Dates: end: 20040101
  9. TELMISARTAN [Concomitant]
     Route: 065
     Dates: start: 20040101
  10. DICLOFENAC [Suspect]
     Route: 065

REACTIONS (17)
  - ABDOMINAL DISCOMFORT [None]
  - ABDOMINAL PAIN [None]
  - ABDOMINAL PAIN UPPER [None]
  - ALOPECIA [None]
  - BILE DUCT OBSTRUCTION [None]
  - BILIARY DILATATION [None]
  - BLOOD PRESSURE INADEQUATELY CONTROLLED [None]
  - BLOOD PRESSURE INCREASED [None]
  - CARDIAC FAILURE CONGESTIVE [None]
  - CHEST PAIN [None]
  - DYSPNOEA [None]
  - GASTRITIS [None]
  - GASTROOESOPHAGEAL REFLUX DISEASE [None]
  - INTERVERTEBRAL DISC PROTRUSION [None]
  - OEDEMA PERIPHERAL [None]
  - PANCREATITIS ACUTE [None]
  - RENAL PAIN [None]
